FAERS Safety Report 15046190 (Version 1)
Quarter: 2018Q2

REPORT INFORMATION
  Report Type: Report from Study
  Country: DE (occurrence: DE)
  Receive Date: 20180621
  Receipt Date: 20180621
  Transmission Date: 20180711
  Serious: Yes (Hospitalization)
  Sender: FDA-Public Use
  Company Number: DE-BIOGEN-2017BI00421035

PATIENT
  Sex: Male
  Weight: 78 kg

DRUGS (1)
  1. PLEGRIDY [Suspect]
     Active Substance: PEGINTERFERON BETA-1A
     Indication: MULTIPLE SCLEROSIS
     Route: 058
     Dates: start: 20170307, end: 20170505

REACTIONS (5)
  - Pain [Unknown]
  - Intentional product use issue [Not Recovered/Not Resolved]
  - Injection site extravasation [Unknown]
  - Peripheral swelling [Recovered/Resolved]
  - Skin hypertrophy [Unknown]
